APPROVED DRUG PRODUCT: CARISOPRODOL AND ASPIRIN
Active Ingredient: ASPIRIN; CARISOPRODOL
Strength: 325MG;200MG
Dosage Form/Route: TABLET;ORAL
Application: A040832 | Product #001
Applicant: NOVAST LABORATORIES LTD
Approved: Jan 7, 2010 | RLD: No | RS: No | Type: DISCN